FAERS Safety Report 5526416-8 (Version None)
Quarter: 2007Q4

REPORT INFORMATION
  Report Type: 
  Country: None (occurrence: None)
  Receive Date: 20071121
  Receipt Date: 20071121
  Transmission Date: 20080405
  Serious: Yes (Hospitalization)
  Sender: FDA-Public Use
  Company Number: None

PATIENT
  Age: 60 Year
  Sex: Male

DRUGS (2)
  1. METHIMAZOLE [Suspect]
     Indication: HYPERTHYROIDISM
     Dosage: 20MG EVERY DAY PO
     Route: 048
     Dates: start: 20070731, end: 20070813
  2. METHIMAZOLE [Suspect]
     Dosage: 5 MG TID PO
     Route: 048
     Dates: start: 20070711, end: 20070731

REACTIONS (1)
  - RASH [None]
